FAERS Safety Report 7303923-9 (Version None)
Quarter: 2011Q1

REPORT INFORMATION
  Report Type: 
  Country: None (occurrence: None)
  Receive Date: 20110221
  Receipt Date: 20110210
  Transmission Date: 20110831
  Serious: Yes (Life-Threatening)
  Sender: FDA-Public Use
  Company Number: US-ROCHE-759756

PATIENT
  Sex: Female

DRUGS (3)
  1. AVASTIN [Suspect]
     Route: 065
  2. TAXOL [Suspect]
     Route: 065
  3. CARBOPLATIN [Suspect]
     Route: 065

REACTIONS (1)
  - CARDIAC ARREST [None]
